FAERS Safety Report 18617325 (Version 1)
Quarter: 2020Q4

REPORT INFORMATION
  Report Type: Spontaneous
  Country: US (occurrence: US)
  Receive Date: 20201214
  Receipt Date: 20201214
  Transmission Date: 20210114
  Serious: No
  Sender: FDA-Public Use
  Company Number: None

PATIENT
  Age: 72 Year
  Sex: Female
  Weight: 69.85 kg

DRUGS (1)
  1. TYMLOS [Suspect]
     Active Substance: ABALOPARATIDE
     Indication: OSTEOPOROSIS
     Dosage: ?          OTHER STRENGTH:3120MCG/1.56ML ;?
     Route: 058
     Dates: start: 202005

REACTIONS (2)
  - Wound [None]
  - Wound infection staphylococcal [None]
